FAERS Safety Report 18204794 (Version 1)
Quarter: 2020Q3

REPORT INFORMATION
  Report Type: Spontaneous
  Country: US (occurrence: US)
  Receive Date: 20200827
  Receipt Date: 20200827
  Transmission Date: 20201103
  Serious: Yes (Other)
  Sender: FDA-Public Use
  Company Number: US-COOPERSURGICAL, INC.-US-2020CPS001986

PATIENT
  Sex: Female
  Weight: 118.82 kg

DRUGS (3)
  1. ANTIBIOTIC                         /00011701/ [Concomitant]
     Active Substance: UNSPECIFIED INGREDIENT
     Indication: PRODUCT USED FOR UNKNOWN INDICATION
     Dosage: UNK
     Route: 065
  2. PARAGARD T 380A [Suspect]
     Active Substance: COPPER
     Indication: CONTRACEPTION
     Dosage: UNK
     Route: 015
     Dates: end: 2020
  3. POTASSIUM [Concomitant]
     Active Substance: POTASSIUM
     Indication: PRODUCT USED FOR UNKNOWN INDICATION
     Dosage: UNK
     Route: 065

REACTIONS (15)
  - Cervical dilatation [Unknown]
  - Nausea [Unknown]
  - Breast enlargement [Unknown]
  - Uterine contractions abnormal [Unknown]
  - Intentional device use issue [Recovered/Resolved]
  - Pregnancy with contraceptive device [Unknown]
  - Abdominal mass [Not Recovered/Not Resolved]
  - Breast discharge [Unknown]
  - Hip deformity [Unknown]
  - Blood pressure increased [Unknown]
  - Pre-eclampsia [Unknown]
  - Food craving [Unknown]
  - Vitamin D decreased [Unknown]
  - Weight decreased [Unknown]
  - Drug ineffective [Unknown]
